FAERS Safety Report 7591998-1 (Version None)
Quarter: 2011Q3

REPORT INFORMATION
  Report Type: 
  Country: None (occurrence: None)
  Receive Date: 20110705
  Receipt Date: 20110705
  Transmission Date: 20111222
  Serious: No
  Sender: FDA-Public Use
  Company Number: None

PATIENT
  Age: 42 Year
  Sex: Female
  Weight: 58.9676 kg

DRUGS (2)
  1. MIRENA [Suspect]
     Indication: CYST
     Dates: start: 20110413, end: 20110620
  2. MIRENA [Suspect]
     Indication: MENORRHAGIA
     Dates: start: 20110413, end: 20110620

REACTIONS (15)
  - MIGRAINE [None]
  - POST PROCEDURAL HAEMORRHAGE [None]
  - FATIGUE [None]
  - DEPRESSION [None]
  - ACTIVITIES OF DAILY LIVING IMPAIRED [None]
  - ABDOMINAL DISTENSION [None]
  - AGITATION [None]
  - PAIN [None]
  - NIGHT SWEATS [None]
  - WEIGHT INCREASED [None]
  - INSOMNIA [None]
  - MUSCLE SPASMS [None]
  - CONSTIPATION [None]
  - METRORRHAGIA [None]
  - PALPITATIONS [None]
